FAERS Safety Report 20446312 (Version 2)
Quarter: 2022Q1

REPORT INFORMATION
  Report Type: Report from Study
  Country: FI (occurrence: FI)
  Receive Date: 20220208
  Receipt Date: 20220310
  Transmission Date: 20220423
  Serious: Yes (Other)
  Sender: FDA-Public Use
  Company Number: FI-MYLANLABS-2021M1095764

PATIENT
  Age: 48 Year
  Sex: Male

DRUGS (29)
  1. CLOZAPINE [Suspect]
     Active Substance: CLOZAPINE
     Indication: Bipolar disorder
     Dosage: UNK
     Dates: start: 1996, end: 2003
  2. CLOZAPINE [Suspect]
     Active Substance: CLOZAPINE
     Indication: Schizophrenia
     Dosage: UNK
     Dates: start: 2003
  3. CLOZAPINE [Suspect]
     Active Substance: CLOZAPINE
     Dosage: 400 MILLIGRAM, QD
  4. CLOZAPINE [Suspect]
     Active Substance: CLOZAPINE
     Dosage: 300 MILLIGRAM, QD
  5. CLOZAPINE [Suspect]
     Active Substance: CLOZAPINE
     Dosage: 350 MILLIGRAM, QD
  6. CLOZAPINE [Suspect]
     Active Substance: CLOZAPINE
     Dosage: 300 MG - 350 MG, QD
     Dates: end: 2019
  7. CLOZAPINE [Suspect]
     Active Substance: CLOZAPINE
     Dosage: 250 MILLIGRAM, QD
     Dates: start: 2019
  8. LITHIUM CARBONATE [Suspect]
     Active Substance: LITHIUM CARBONATE
     Indication: Bipolar disorder
     Dosage: UNK
     Dates: start: 1998, end: 2003
  9. LITHIUM CARBONATE [Suspect]
     Active Substance: LITHIUM CARBONATE
     Indication: Schizophrenia
     Dosage: UNK
     Dates: start: 2003
  10. LITHIUM CARBONATE [Suspect]
     Active Substance: LITHIUM CARBONATE
     Dosage: 2400 MILLIGRAM, QD
  11. LITHIUM CARBONATE [Suspect]
     Active Substance: LITHIUM CARBONATE
     Dosage: 900 MILLIGRAM, BID (3 TABLETS, TWICE DAILY)
  12. LITHIUM CARBONATE [Suspect]
     Active Substance: LITHIUM CARBONATE
     Dosage: 1500 MILLIGRAM, QD (600 MG PLUS 900 MG DAILY)
     Dates: end: 2021
  13. LITHIUM CARBONATE [Suspect]
     Active Substance: LITHIUM CARBONATE
     Dosage: 1350 MILLIGRAM, QD (600 MG PLUS 750 MG QD)
     Dates: start: 2021, end: 2021
  14. LITHIUM CARBONATE [Suspect]
     Active Substance: LITHIUM CARBONATE
     Dosage: 1050 MILLIGRAM, QD (450 MG PLUS 600 MG QD)
     Dates: start: 20210617, end: 20211014
  15. LITHIUM CARBONATE [Suspect]
     Active Substance: LITHIUM CARBONATE
     Dosage: 750 MILLIGRAM, QD (300 MG PLUS 450 MG QD)
     Dates: start: 20211015
  16. LITHIUM CARBONATE [Suspect]
     Active Substance: LITHIUM CARBONATE
     Dosage: 300 MILLIGRAM, QD
     Dates: start: 20220304
  17. VALPROIC ACID [Concomitant]
     Active Substance: VALPROIC ACID
     Indication: Mood altered
     Dosage: 1000 MILLIGRAM, PM
     Dates: start: 202105, end: 20210616
  18. VALPROIC ACID [Concomitant]
     Active Substance: VALPROIC ACID
     Dosage: 2000 MILLIGRAM, QD (500 MG PLUS 1500 MG DAILY)
     Dates: start: 20210617, end: 20211014
  19. VALPROIC ACID [Concomitant]
     Active Substance: VALPROIC ACID
     Dosage: 2500 MILLIGRAM, QD (1000 MG PLUS 1500 MG, QD)
     Dates: start: 20211015
  20. VALPROIC ACID [Concomitant]
     Active Substance: VALPROIC ACID
     Dosage: 2000 MILLIGRAM, QD
     Dates: end: 2011
  21. VALPROIC ACID [Concomitant]
     Active Substance: VALPROIC ACID
     Dosage: 1500 MILLIGRAM
  22. SEROQUEL [Concomitant]
     Active Substance: QUETIAPINE FUMARATE
     Dosage: 600 MILLIGRAM, QD
  23. VALPROATE SODIUM [Concomitant]
     Active Substance: VALPROATE SODIUM
     Dosage: UNK
  24. Triobe [Concomitant]
     Indication: Blood homocysteine increased
     Dosage: 2 DOSAGE FORM, QD
     Route: 048
  25. CALCI-CHEW [Concomitant]
     Dosage: 1 DOSAGE FORM, QD
     Route: 048
  26. MEDITHYROX [Concomitant]
     Dosage: 1 DOSAGE FORM, AM
     Dates: end: 20190826
  27. MEDITHYROX [Concomitant]
     Dosage: 1 DOSAGE FORM, QD
     Dates: start: 20190827
  28. CARNITINE [Concomitant]
     Active Substance: CARNITINE
     Dosage: 2 DOSAGE FORM, BID
     Route: 048
  29. LEVOTHYROXINE [Concomitant]
     Active Substance: LEVOTHYROXINE
     Indication: Hypothyroidism
     Dosage: UNK

REACTIONS (11)
  - Hypothyroidism [Unknown]
  - Neutropenia [Not Recovered/Not Resolved]
  - Aortic aneurysm [Not Recovered/Not Resolved]
  - Irritability [Unknown]
  - Nephropathy [Not Recovered/Not Resolved]
  - Blood homocysteine increased [Unknown]
  - Restlessness [Unknown]
  - Blood pressure diastolic increased [Unknown]
  - Blood creatinine increased [Not Recovered/Not Resolved]
  - Glomerular filtration rate decreased [Not Recovered/Not Resolved]
  - Off label use [Unknown]

NARRATIVE: CASE EVENT DATE: 20190408
